FAERS Safety Report 8537364-3 (Version None)
Quarter: 2012Q3

REPORT INFORMATION
  Report Type: 
  Country: None (occurrence: None)
  Receive Date: 20120725
  Receipt Date: 20120717
  Transmission Date: 20120928
  Serious: Yes (Hospitalization)
  Sender: FDA-Public Use
  Company Number: US-JNJFOC-20120612526

PATIENT
  Sex: Male
  Weight: 83 kg

DRUGS (7)
  1. PREZISTA [Suspect]
     Indication: ACQUIRED IMMUNODEFICIENCY SYNDROME
     Route: 048
  2. BACTRIM [Concomitant]
     Indication: ANTIFUNGAL PROPHYLAXIS
     Dosage: 1 DRESSING (DSG)
     Route: 065
     Dates: start: 20101108, end: 20110204
  3. ATENOLOL [Concomitant]
     Indication: HYPERTENSION
     Route: 065
     Dates: start: 20111024, end: 20120324
  4. PREZISTA [Suspect]
     Route: 048
     Dates: start: 20100712, end: 20120301
  5. TRUVADA [Suspect]
     Indication: ACQUIRED IMMUNODEFICIENCY SYNDROME
     Route: 065
     Dates: start: 20100701
  6. ACETYLSALICYLIC ACID SRT [Concomitant]
     Indication: HYPERTENSION
     Route: 065
     Dates: start: 20111024, end: 20120324
  7. NORVIR [Suspect]
     Indication: ACQUIRED IMMUNODEFICIENCY SYNDROME
     Route: 065
     Dates: start: 20100701

REACTIONS (5)
  - INFLUENZA [None]
  - GENITAL LESION [None]
  - HODGKIN'S DISEASE [None]
  - UPPER RESPIRATORY TRACT INFECTION [None]
  - DRUG-INDUCED LIVER INJURY [None]
